FAERS Safety Report 18044805 (Version 1)
Quarter: 2020Q3

REPORT INFORMATION
  Report Type: Report from Study
  Country: US (occurrence: US)
  Receive Date: 20200720
  Receipt Date: 20200720
  Transmission Date: 20201103
  Serious: Yes (Other)
  Sender: FDA-Public Use
  Company Number: US-GLAXOSMITHKLINE-2019-TSO01730-US

PATIENT
  Age: 63 Year
  Sex: Female
  Weight: 63.7 kg

DRUGS (3)
  1. NIRAPARIB [Suspect]
     Active Substance: NIRAPARIB
     Dosage: 200 MG, BY MOUTH NIGHTLY
     Route: 048
     Dates: start: 20180626
  2. NIRAPARIB [Suspect]
     Active Substance: NIRAPARIB
     Indication: OVARIAN CANCER
     Dosage: 200 MG, QD
     Route: 048
     Dates: start: 20180626
  3. NIRAPARIB [Suspect]
     Active Substance: NIRAPARIB
     Dosage: 200 MG, QD

REACTIONS (9)
  - Mean cell haemoglobin increased [Unknown]
  - Blood glucose increased [Unknown]
  - Carbohydrate antigen 125 increased [Unknown]
  - Blood urea increased [Unknown]
  - Drug ineffective [Unknown]
  - Recurrent cancer [Unknown]
  - Hypertension [Unknown]
  - Mean cell volume increased [Unknown]
  - Neutrophil percentage increased [Unknown]

NARRATIVE: CASE EVENT DATE: 20190430
